FAERS Safety Report 15014467 (Version 1)
Quarter: 2018Q2

REPORT INFORMATION
  Report Type: Report from Study
  Country: CN (occurrence: CN)
  Receive Date: 20180615
  Receipt Date: 20180615
  Transmission Date: 20180711
  Serious: Yes (Other)
  Sender: FDA-Public Use
  Company Number: CN-ROCHE-2136702

PATIENT

DRUGS (4)
  1. CAPECITABINE. [Suspect]
     Active Substance: CAPECITABINE
     Indication: COLORECTAL CANCER METASTATIC
     Dosage: 1 CYCLE (USED 2 WEEKS, STOPPED 1 WEEK),2-4 CYCLE
     Route: 048
  2. APATINIB [Suspect]
     Active Substance: APATINIB
     Indication: COLORECTAL CANCER METASTATIC
     Route: 048
  3. APATINIB [Suspect]
     Active Substance: APATINIB
     Dosage: 2 WEEKS AFTER TOLERATION
     Route: 048
  4. APATINIB [Suspect]
     Active Substance: APATINIB
     Dosage: IF INTOLERANCE
     Route: 048

REACTIONS (10)
  - Abdominal pain [Unknown]
  - Abdominal distension [Unknown]
  - Haemorrhage [Unknown]
  - Proteinuria [Unknown]
  - Renal impairment [Unknown]
  - Gastrointestinal toxicity [Unknown]
  - Pyrexia [Unknown]
  - Diarrhoea [Unknown]
  - Dizziness [Unknown]
  - Hypertension [Unknown]
